FAERS Safety Report 8509737-6 (Version None)
Quarter: 2012Q2

REPORT INFORMATION
  Report Type: 
  Country: None (occurrence: None)
  Receive Date: 20120405
  Receipt Date: 20090521
  Transmission Date: 20120825
  Serious: Yes (Hospitalization)
  Sender: FDA-Public Use
  Company Number: PHEH2009US04976

PATIENT
  Age: 79 Year
  Sex: Female
  Weight: 61.7 kg

DRUGS (9)
  1. TYLENOL W/ CODEINE NO. 3 [Concomitant]
  2. ASCORBIC ACID [Concomitant]
  3. RECLAST [Suspect]
     Indication: OSTEOPOROSIS
     Dosage: 5 MG, ONCE/SINGLE, INFUSION
     Dates: start: 20090506, end: 20090506
  4. ASPIRIN [Concomitant]
  5. FLEXERIL [Concomitant]
  6. LASIX [Concomitant]
  7. SYNTHROID [Concomitant]
  8. COREG [Concomitant]
  9. VITAMIN E [Concomitant]

REACTIONS (7)
  - BEDRIDDEN [None]
  - ABASIA [None]
  - MUSCULOSKELETAL STIFFNESS [None]
  - BACK PAIN [None]
  - MYALGIA [None]
  - ARTHRALGIA [None]
  - PAIN [None]
